FAERS Safety Report 19183526 (Version 8)
Quarter: 2025Q1

REPORT INFORMATION
  Report Type: Other
  Country: CA (occurrence: CA)
  Receive Date: 20210427
  Receipt Date: 20250217
  Transmission Date: 20250409
  Serious: Yes (Other)
  Sender: APOTEX
  Company Number: CA-APOTEX-2021AP010156

PATIENT
  Age: 9 Year
  Sex: Male

DRUGS (36)
  1. BUSULFAN [Suspect]
     Active Substance: BUSULFAN
     Indication: Acute myeloid leukaemia
     Route: 065
  2. FILGRASTIM [Suspect]
     Active Substance: FILGRASTIM
     Indication: Acute myeloid leukaemia
     Dosage: 5 MICROGRAM/SQ. METER, QD
     Route: 065
  3. DAUNORUBICIN HYDROCHLORIDE [Suspect]
     Active Substance: DAUNORUBICIN HYDROCHLORIDE
     Indication: Acute myeloid leukaemia
     Route: 065
  4. DAUNORUBICIN HYDROCHLORIDE [Suspect]
     Active Substance: DAUNORUBICIN HYDROCHLORIDE
     Route: 065
  5. CYCLOPHOSPHAMIDE [Suspect]
     Active Substance: CYCLOPHOSPHAMIDE
     Indication: Acute myeloid leukaemia
     Route: 042
  6. CYTARABINE [Suspect]
     Active Substance: CYTARABINE
     Indication: Acute myeloid leukaemia
     Route: 065
  7. CYTARABINE [Suspect]
     Active Substance: CYTARABINE
     Dosage: 2000 MILLIGRAM/SQ. METER, QD
     Route: 037
  8. CYTARABINE [Suspect]
     Active Substance: CYTARABINE
     Route: 065
  9. CYTARABINE [Suspect]
     Active Substance: CYTARABINE
     Route: 065
  10. ETOPOSIDE [Suspect]
     Active Substance: ETOPOSIDE
     Indication: Acute myeloid leukaemia
     Route: 065
  11. FLUDARABINE PHOSPHATE [Suspect]
     Active Substance: FLUDARABINE PHOSPHATE
     Indication: Acute myeloid leukaemia
     Dosage: 30 MILLIGRAM/SQ. METER, QD
     Route: 048
  12. FLUDARABINE PHOSPHATE [Suspect]
     Active Substance: FLUDARABINE PHOSPHATE
     Dosage: 30 MILLIGRAM/SQ. METER, QD
     Route: 065
  13. RYDAPT [Suspect]
     Active Substance: MIDOSTAURIN
     Indication: Acute myeloid leukaemia
     Dosage: 15 MILLIGRAM/SQ. METER, BID
     Route: 048
  14. RYDAPT [Suspect]
     Active Substance: MIDOSTAURIN
     Dosage: 30 MILLIGRAM/SQ. METER, QD
     Route: 048
  15. RYDAPT [Suspect]
     Active Substance: MIDOSTAURIN
     Route: 048
  16. RYDAPT [Suspect]
     Active Substance: MIDOSTAURIN
     Route: 048
  17. RYDAPT [Suspect]
     Active Substance: MIDOSTAURIN
     Route: 048
  18. NEXAVAR [Suspect]
     Active Substance: SORAFENIB
     Indication: Acute myeloid leukaemia
     Dosage: 200 MILLIGRAM/SQ. METER, QD
     Route: 065
  19. NEXAVAR [Suspect]
     Active Substance: SORAFENIB
     Route: 005
  20. NEXAVAR [Suspect]
     Active Substance: SORAFENIB
     Route: 065
  21. NEXAVAR [Suspect]
     Active Substance: SORAFENIB
     Route: 065
  22. NEXAVAR [Suspect]
     Active Substance: SORAFENIB
     Route: 065
  23. THYMOGLOBULIN [Suspect]
     Active Substance: LAPINE T-LYMPHOCYTE IMMUNE GLOBULIN
     Indication: Acute myeloid leukaemia
     Route: 042
  24. THYMOGLOBULIN [Suspect]
     Active Substance: LAPINE T-LYMPHOCYTE IMMUNE GLOBULIN
     Route: 065
  25. BUSULFEX [Suspect]
     Active Substance: BUSULFAN
     Indication: Acute myeloid leukaemia
     Route: 065
  26. MIDOSTAURIN [Suspect]
     Active Substance: MIDOSTAURIN
     Indication: Acute myeloid leukaemia
     Route: 048
  27. MIDOSTAURIN [Suspect]
     Active Substance: MIDOSTAURIN
     Dosage: 15 MILLIGRAM/SQ. METER, BID
     Route: 048
  28. MIDOSTAURIN [Suspect]
     Active Substance: MIDOSTAURIN
     Route: 048
  29. NEXAVAR [Suspect]
     Active Substance: SORAFENIB
     Indication: Acute myeloid leukaemia
     Route: 065
  30. NEXAVAR [Suspect]
     Active Substance: SORAFENIB
     Dosage: 200 MILLIGRAM/SQ. METER, QD
     Route: 065
  31. CYTARABINE [Suspect]
     Active Substance: CYTARABINE
     Indication: Acute myeloid leukaemia
     Route: 037
  32. CYTARABINE [Suspect]
     Active Substance: CYTARABINE
     Route: 037
  33. CYTARABINE [Suspect]
     Active Substance: CYTARABINE
     Route: 037
  34. CYTARABINE [Suspect]
     Active Substance: CYTARABINE
     Dosage: 2000 MILLIGRAM/SQ. METER, QD
     Route: 037
  35. DAUNORUBICIN [Suspect]
     Active Substance: DAUNORUBICIN
     Indication: Acute myeloid leukaemia
     Route: 065
  36. DAUNORUBICIN [Suspect]
     Active Substance: DAUNORUBICIN
     Route: 040

REACTIONS (8)
  - Skin toxicity [Recovered/Resolved with Sequelae]
  - Acute myeloid leukaemia recurrent [Recovered/Resolved with Sequelae]
  - Drug intolerance [Recovered/Resolved with Sequelae]
  - Bone marrow failure [Recovered/Resolved with Sequelae]
  - Lymphadenopathy [Recovered/Resolved with Sequelae]
  - Pancytopenia [Recovered/Resolved with Sequelae]
  - Malignant neoplasm progression [Recovered/Resolved with Sequelae]
  - Myelosuppression [Recovered/Resolved with Sequelae]
